FAERS Safety Report 19355465 (Version 1)
Quarter: 2021Q2

REPORT INFORMATION
  Report Type: Spontaneous
  Country: GB (occurrence: GB)
  Receive Date: 20210602
  Receipt Date: 20210602
  Transmission Date: 20210717
  Serious: Yes (Other)
  Sender: FDA-Public Use
  Company Number: GB-ROCHE-2840109

PATIENT
  Sex: Female

DRUGS (3)
  1. KALYDECO [Suspect]
     Active Substance: IVACAFTOR
     Indication: CYSTIC FIBROSIS
     Route: 048
     Dates: start: 2018
  2. PROMIXIN (UNITED KINGDOM) [Concomitant]
     Active Substance: COLISTIMETHATE SODIUM
  3. PULMOZYME [Suspect]
     Active Substance: DORNASE ALFA
     Indication: PRODUCT USED FOR UNKNOWN INDICATION
     Dosage: (STARTED: AT LEAST 10 YEARS AGO), RECENTLY: STOPPED
     Route: 065

REACTIONS (4)
  - Pulmonary haemorrhage [Unknown]
  - Asthenia [Unknown]
  - Cough [Unknown]
  - Angiopathy [Unknown]
